FAERS Safety Report 7145976-7 (Version None)
Quarter: 2010Q4

REPORT INFORMATION
  Report Type: 
  Country: None (occurrence: None)
  Receive Date: 20101208
  Receipt Date: 20101129
  Transmission Date: 20110411
  Serious: Yes (Hospitalization)
  Sender: FDA-Public Use
  Company Number: JP-SANOFI-AVENTIS-2010SA070602

PATIENT
  Age: 68 Year
  Sex: Male
  Weight: 49 kg

DRUGS (18)
  1. ELPLAT [Suspect]
     Indication: GASTRIC CANCER
     Route: 041
     Dates: start: 20100528, end: 20100528
  2. ELPLAT [Suspect]
     Route: 041
     Dates: start: 20100623, end: 20100623
  3. ELPLAT [Suspect]
     Route: 041
     Dates: start: 20100714, end: 20100714
  4. ELPLAT [Suspect]
     Route: 041
     Dates: start: 20100811, end: 20100811
  5. ELPLAT [Suspect]
     Route: 041
     Dates: start: 20100901, end: 20100901
  6. ELPLAT [Suspect]
     Route: 041
     Dates: start: 20101006, end: 20101006
  7. ELPLAT [Suspect]
     Route: 041
     Dates: start: 20101027, end: 20101027
  8. TS-1 [Suspect]
     Indication: GASTRIC CANCER
     Dates: start: 20100528
  9. TS-1 [Suspect]
     Dates: start: 20100623
  10. TS-1 [Suspect]
     Dates: start: 20100714
  11. TS-1 [Suspect]
     Dates: start: 20100811
  12. TS-1 [Suspect]
     Dates: start: 20100901
  13. TS-1 [Suspect]
     Dates: start: 20101006
  14. TS-1 [Suspect]
     Dates: start: 20101027
  15. PARIET [Suspect]
     Indication: GASTRIC CANCER
     Dates: start: 20100524
  16. MAGNESIUM OXIDE [Suspect]
     Indication: CONSTIPATION
     Route: 048
     Dates: start: 20100524
  17. HORIZON [Concomitant]
     Route: 042
     Dates: start: 20101117
  18. SERENACE [Concomitant]
     Route: 042
     Dates: start: 20101117

REACTIONS (6)
  - ALTERED STATE OF CONSCIOUSNESS [None]
  - CONVULSION [None]
  - METASTASES TO OESOPHAGUS [None]
  - NERVOUS SYSTEM DISORDER [None]
  - PERIPHERAL SENSORY NEUROPATHY [None]
  - PLATELET COUNT DECREASED [None]
